FAERS Safety Report 5572982-6 (Version None)
Quarter: 2007Q4

REPORT INFORMATION
  Report Type: 
  Country: None (occurrence: None)
  Receive Date: 20071224
  Receipt Date: 20071218
  Transmission Date: 20080405
  Serious: Yes (Hospitalization)
  Sender: FDA-Public Use
  Company Number: US-BRISTOL-MYERS SQUIBB COMPANY-14005342

PATIENT
  Age: 73 Year
  Sex: Male

DRUGS (1)
  1. ERBITUX [Suspect]
     Dates: start: 20070910, end: 20070910

REACTIONS (4)
  - COMA [None]
  - CONFUSIONAL STATE [None]
  - DEHYDRATION [None]
  - RESPIRATORY DISTRESS [None]
